FAERS Safety Report 9818388 (Version 3)
Quarter: 2014Q2

REPORT INFORMATION
  Report Type: Spontaneous
  Country: US (occurrence: US)
  Receive Date: 20140115
  Receipt Date: 20140410
  Transmission Date: 20141212
  Serious: No
  Sender: FDA-Public Use
  Company Number: US-PFIZER INC-2014006585

PATIENT
  Age: 63 Year
  Sex: Female

DRUGS (5)
  1. VIBRAMYCIN [Suspect]
     Indication: BRONCHITIS
     Dosage: 100 MG, 2X/DAY
     Route: 048
     Dates: start: 20130618, end: 20130618
  2. VIBRAMYCIN [Suspect]
     Indication: OROPHARYNGEAL PAIN
  3. PRAVASTATIN [Concomitant]
     Dosage: 40 MG, 1X/DAY
  4. DITROPAN [Concomitant]
     Dosage: 5 MG, DAILY
  5. LISINOPRIL [Concomitant]
     Dosage: 10 MG, 1X/DAY

REACTIONS (2)
  - Drug hypersensitivity [Recovered/Resolved]
  - Nausea [Recovered/Resolved]
